FAERS Safety Report 12069969 (Version 2)
Quarter: 2016Q1

REPORT INFORMATION
  Report Type: Spontaneous
  Country: ES (occurrence: ES)
  Receive Date: 20160211
  Receipt Date: 20160218
  Transmission Date: 20160526
  Serious: Yes (Death)
  Sender: FDA-Public Use
  Company Number: ES-BAYER-2016-024833

PATIENT
  Age: 52 Year
  Sex: Male

DRUGS (16)
  1. ULTRAVIST [Suspect]
     Active Substance: IOPROMIDE
     Indication: ANGIOGRAM
  2. RENVELA [Concomitant]
     Active Substance: SEVELAMER CARBONATE
  3. DORMODOR [Concomitant]
  4. COROPRES [Concomitant]
     Active Substance: CARVEDILOL
  5. CLOPIDOGREL [Concomitant]
     Active Substance: CLOPIDOGREL BISULFATE
  6. CARDYL [Concomitant]
     Active Substance: ATORVASTATIN CALCIUM
  7. CORLENTOR [Concomitant]
     Active Substance: IVABRADINE HYDROCHLORIDE
  8. LEDERFOLIN [Concomitant]
     Active Substance: LEUCOVORIN CALCIUM
  9. LYRICA [Concomitant]
     Active Substance: PREGABALIN
  10. ULTRAVIST [Suspect]
     Active Substance: IOPROMIDE
     Indication: SCAN WITH CONTRAST
     Dosage: 100 ML, ONCE (4ML/SEC)
     Route: 042
     Dates: start: 20160204, end: 20160204
  11. ENALAPRIL [Concomitant]
     Active Substance: ENALAPRIL
  12. JANUVIA [Concomitant]
     Active Substance: SITAGLIPTIN PHOSPHATE
  13. PANTOPRAZOLE [Concomitant]
     Active Substance: PANTOPRAZOLE SODIUM
  14. ACETYLSALICYLIC ACID [Concomitant]
     Active Substance: ASPIRIN
  15. FOSRENOL [Concomitant]
     Active Substance: LANTHANUM CARBONATE
  16. INSULIN ASPART [Concomitant]
     Active Substance: INSULIN ASPART

REACTIONS (3)
  - Sneezing [Fatal]
  - Cardio-respiratory arrest [Fatal]
  - Dizziness [Fatal]

NARRATIVE: CASE EVENT DATE: 20160204
